FAERS Safety Report 6186820-4 (Version None)
Quarter: 2009Q2

REPORT INFORMATION
  Report Type: 
  Country: None (occurrence: None)
  Receive Date: 20090508
  Receipt Date: 20090508
  Transmission Date: 20091009
  Serious: Yes (Hospitalization)
  Sender: FDA-Public Use
  Company Number: None

PATIENT
  Age: 59 Year
  Sex: Male
  Weight: 87 kg

DRUGS (2)
  1. CISPLATIN [Suspect]
     Indication: NEOPLASM MALIGNANT
     Dosage: 40 MG EVERY DAY IV
     Route: 042
     Dates: start: 20090424, end: 20090428
  2. ETOPOSIDE [Suspect]
     Indication: NEOPLASM MALIGNANT
     Dosage: 200 MG EVERY DAY IV
     Route: 042
     Dates: start: 20090424, end: 20090429

REACTIONS (1)
  - FEBRILE NEUTROPENIA [None]
